FAERS Safety Report 7753520-6 (Version None)
Quarter: 2011Q3

REPORT INFORMATION
  Report Type: 
  Country: None (occurrence: None)
  Receive Date: 20110915
  Receipt Date: 20110912
  Transmission Date: 20111222
  Serious: Yes (Other)
  Sender: FDA-Public Use
  Company Number: CA-TEVA-300425USA

PATIENT
  Age: 50 Year
  Sex: Male

DRUGS (2)
  1. GEMCITABINE [Suspect]
     Indication: SMALL INTESTINE CARCINOMA
     Dosage: 142.8571 MG/M2;
  2. GEMCITABINE [Suspect]
     Dosage: 11.4286 MG/M2;

REACTIONS (1)
  - MYOSITIS [None]
